FAERS Safety Report 7525033-8 (Version None)
Quarter: 2011Q2

REPORT INFORMATION
  Report Type: 
  Country: None (occurrence: None)
  Receive Date: 20110606
  Receipt Date: 20110531
  Transmission Date: 20111010
  Serious: Yes (Death)
  Sender: FDA-Public Use
  Company Number: US-CELGENEUS-163-21880-11053881

PATIENT
  Sex: Male

DRUGS (8)
  1. ASPIRIN [Concomitant]
     Dosage: 81 MILLIGRAM
     Route: 065
  2. DECADRON [Concomitant]
     Dosage: .5 MILLIGRAM
     Route: 065
  3. REVLIMID [Suspect]
     Indication: MULTIPLE MYELOMA
     Dosage: 25 MILLIGRAM
     Route: 048
     Dates: start: 20110301
  4. GLUCOSAMINE [Concomitant]
     Dosage: 500 MILLIGRAM
     Route: 065
  5. ALOXI [Concomitant]
     Route: 050
  6. VELCADE [Concomitant]
     Dosage: 3.5 MILLIGRAM
     Route: 050
  7. MULTI-VITAMINS [Concomitant]
     Route: 065
  8. ZOMETA [Concomitant]
     Dosage: 4MG/5ML
     Route: 050

REACTIONS (1)
  - DEATH [None]
